FAERS Safety Report 6699012-7 (Version None)
Quarter: 2010Q2

REPORT INFORMATION
  Report Type: 
  Country: None (occurrence: None)
  Receive Date: 20100426
  Receipt Date: 20100426
  Transmission Date: 20101027
  Serious: Yes (Death, Hospitalization)
  Sender: FDA-Public Use
  Company Number: None

PATIENT
  Age: 84 Year
  Sex: Male
  Weight: 75 kg

DRUGS (1)
  1. FLUDROCORTISONE [Suspect]
     Indication: CARDIAC FAILURE CONGESTIVE
     Dosage: 0.2 MG BID PO
     Route: 048
     Dates: start: 20080215, end: 20100319

REACTIONS (2)
  - CARDIAC FAILURE [None]
  - CONDITION AGGRAVATED [None]
